FAERS Safety Report 5570494-7 (Version None)
Quarter: 2007Q4

REPORT INFORMATION
  Report Type: 
  Country: None (occurrence: None)
  Receive Date: 20071221
  Receipt Date: 20071105
  Transmission Date: 20080405
  Serious: No
  Sender: FDA-Public Use
  Company Number: US-BRISTOL-MYERS SQUIBB COMPANY-13969324

PATIENT
  Age: 70 Year
  Sex: Female
  Weight: 63 kg

DRUGS (6)
  1. ORENCIA [Suspect]
     Route: 042
     Dates: start: 20071025, end: 20071025
  2. XANAX [Concomitant]
  3. PREDNISONE [Concomitant]
  4. AVAPRO [Concomitant]
  5. CENTRUM SILVER [Concomitant]
  6. CALCIUM [Concomitant]

REACTIONS (1)
  - MYALGIA [None]
